FAERS Safety Report 8825906 (Version 2)
Quarter: 2012Q4

REPORT INFORMATION
  Report Type: 
  Country: US (occurrence: US)
  Receive Date: 20121005
  Receipt Date: 20121102
  Transmission Date: 20130627
  Serious: Yes (Other)
  Sender: FDA-Public Use
  Company Number: US-ELI_LILLY_AND_COMPANY-US201209007337

PATIENT
  Age: 65 Year
  Sex: Female
  Weight: 82 kg

DRUGS (4)
  1. CYMBALTA [Suspect]
     Indication: DEPRESSION
     Dosage: 60mg, daily
     Route: 048
     Dates: start: 2004
  2. ATENOLOL [Concomitant]
  3. DILTIAZEM [Concomitant]
  4. PERCOCET [Concomitant]

REACTIONS (17)
  - Suicidal ideation [Recovered/Resolved]
  - Drug withdrawal syndrome [Recovered/Resolved]
  - Asthenia [Recovered/Resolved]
  - Nausea [Recovered/Resolved]
  - Dizziness [Recovered/Resolved]
  - Decreased appetite [Recovered/Resolved]
  - Hypersomnia [Recovered/Resolved]
  - Intentional drug misuse [Recovered/Resolved]
  - Drug ineffective [Unknown]
  - Product tampering [Unknown]
  - Herpes zoster [Not Recovered/Not Resolved]
  - Rash [Not Recovered/Not Resolved]
  - Fungal infection [Recovering/Resolving]
  - Tinea pedis [Unknown]
  - Pruritus [Unknown]
  - Vaginal lesion [Unknown]
  - Folliculitis [Unknown]
